FAERS Safety Report 14611742 (Version 2)
Quarter: 2020Q2

REPORT INFORMATION
  Report Type: Spontaneous
  Country: US (occurrence: US)
  Receive Date: 20180308
  Receipt Date: 20200409
  Transmission Date: 20200713
  Serious: No
  Sender: FDA-Public Use
  Company Number: US-PFIZER INC-2018093069

PATIENT
  Age: 52 Year
  Sex: Female

DRUGS (1)
  1. RAPAMUNE [Suspect]
     Active Substance: SIROLIMUS
     Indication: HEART TRANSPLANT
     Dosage: 1 MG, DAILY
     Route: 048

REACTIONS (4)
  - Fall [Unknown]
  - Off label use [Unknown]
  - Product use in unapproved indication [Unknown]
  - Pain [Unknown]
